FAERS Safety Report 15986644 (Version 2)
Quarter: 2019Q1

REPORT INFORMATION
  Report Type: Spontaneous
  Country: US (occurrence: US)
  Receive Date: 20190220
  Receipt Date: 20190308
  Transmission Date: 20190418
  Serious: Yes (Hospitalization)
  Sender: FDA-Public Use
  Company Number: US-ACTELION-A-NJ2019-186356

PATIENT
  Age: 18 Year
  Sex: Female
  Weight: 53.97 kg

DRUGS (3)
  1. UPTRAVI [Suspect]
     Active Substance: SELEXIPAG
     Indication: PULMONARY HYPERTENSION
     Dosage: 1400 MCG, BID
     Route: 048
  2. OPSUMIT [Suspect]
     Active Substance: MACITENTAN
     Indication: PULMONARY HYPERTENSION
     Dosage: 10 MG, QD
     Route: 048
  3. REMODULIN [Concomitant]
     Active Substance: TREPROSTINIL

REACTIONS (6)
  - Dyspnoea [Unknown]
  - Catheterisation cardiac abnormal [Unknown]
  - Syncope [Unknown]
  - Condition aggravated [Unknown]
  - Chest pain [Unknown]
  - Haemodynamic test abnormal [Unknown]

NARRATIVE: CASE EVENT DATE: 20170207
